FAERS Safety Report 6244023-9 (Version None)
Quarter: 2009Q2

REPORT INFORMATION
  Report Type: 
  Country: None (occurrence: None)
  Receive Date: 20090623
  Receipt Date: 20090616
  Transmission Date: 20091009
  Serious: Yes (Life-Threatening, Hospitalization)
  Sender: FDA-Public Use
  Company Number: SPV1-2009-01200

PATIENT
  Age: 3 Year
  Sex: Male
  Weight: 26 kg

DRUGS (9)
  1. ELAPRASE [Suspect]
     Indication: MUCOPOLYSACCHARIDOSIS II
     Dosage: 0.5 MG/KG, 1X/WEEK, IV DRIP
     Route: 041
     Dates: start: 20080902, end: 20090602
  2. HYDROXYZINE HCL [Concomitant]
  3. PREDNISOLONE ACETATE [Concomitant]
  4. BUDESONIDE [Concomitant]
  5. PROCATEROL HCL [Concomitant]
  6. SODIUM PICOSULFATE (SODIUM PICOSULFATE) [Concomitant]
  7. DIFLUCORTOLONE VALERATE (DIFLUCORTOLONE VALERATE) [Concomitant]
  8. HEPARINOID (HEPARINOID) [Concomitant]
  9. CETIRIZINE HCL [Concomitant]

REACTIONS (7)
  - ANAPHYLACTIC REACTION [None]
  - DYSPNOEA [None]
  - INFUSION RELATED REACTION [None]
  - PRURITUS [None]
  - RASH GENERALISED [None]
  - RESTLESSNESS [None]
  - WHEEZING [None]
